FAERS Safety Report 7715032-5 (Version None)
Quarter: 2011Q3

REPORT INFORMATION
  Report Type: 
  Country: None (occurrence: None)
  Receive Date: 20110829
  Receipt Date: 20110614
  Transmission Date: 20111222
  Serious: No
  Sender: FDA-Public Use
  Company Number: US-ASTRAZENECA-2011SE36406

PATIENT
  Age: 73 Year
  Sex: Female

DRUGS (5)
  1. HYDROCODONE BITARTRATE [Concomitant]
     Indication: PAIN
  2. VIMOVO [Suspect]
     Indication: MUSCULOSKELETAL PAIN
     Dosage: 500MG/ 20MG TWO TIMES DAILY
     Route: 048
     Dates: start: 20110415, end: 20110430
  3. MOBIC [Concomitant]
     Indication: ARTHRITIS
  4. CLONAZEPAM [Concomitant]
     Indication: SLEEP DISORDER
  5. B P MEDICATION [Concomitant]
     Indication: HYPERTENSION

REACTIONS (3)
  - EYELID DISORDER [None]
  - BLISTER [None]
  - OEDEMA PERIPHERAL [None]
